FAERS Safety Report 15165057 (Version 2)
Quarter: 2018Q3

REPORT INFORMATION
  Report Type: Spontaneous
  Country: JP (occurrence: JP)
  Receive Date: 20180719
  Receipt Date: 20180912
  Transmission Date: 20181010
  Serious: Yes (Hospitalization)
  Sender: FDA-Public Use
  Company Number: JP-OTSUKA-2018_020744AA

PATIENT
  Age: 87 Year
  Sex: Male

DRUGS (2)
  1. CILOSTAZOL. [Suspect]
     Active Substance: CILOSTAZOL
     Indication: LACUNAR INFARCTION
     Dosage: UNK
     Route: 065
     Dates: start: 2010
  2. LANSOPRAZOLE. [Concomitant]
     Active Substance: LANSOPRAZOLE
     Indication: EPIGASTRIC DISCOMFORT
     Dosage: 15 MG, DAILY DOSE
     Route: 065
     Dates: start: 2010

REACTIONS (2)
  - Anastomotic ulcer haemorrhage [Recovering/Resolving]
  - Anastomotic ulcer [Recovering/Resolving]

NARRATIVE: CASE EVENT DATE: 2017
